FAERS Safety Report 25634723 (Version 1)
Quarter: 2025Q3

REPORT INFORMATION
  Report Type: Spontaneous
  Country: US (occurrence: US)
  Receive Date: 20250801
  Receipt Date: 20250801
  Transmission Date: 20251021
  Serious: Yes (Other)
  Sender: BIOGEN
  Company Number: US-BIOGEN-2025BI01318555

PATIENT
  Age: 9 Year
  Sex: Male

DRUGS (1)
  1. SPINRAZA [Suspect]
     Active Substance: NUSINERSEN
     Indication: Spinal muscular atrophy
     Route: 050
     Dates: start: 20170815

REACTIONS (3)
  - Musculoskeletal procedural complication [Unknown]
  - Inadequate analgesia [Unknown]
  - Anaesthetic complication [Unknown]

NARRATIVE: CASE EVENT DATE: 20250724
